FAERS Safety Report 25715216 (Version 1)
Quarter: 2025Q3

REPORT INFORMATION
  Report Type: Report from Study
  Country: JP (occurrence: JP)
  Receive Date: 20250822
  Receipt Date: 20250822
  Transmission Date: 20251021
  Serious: Yes (Death)
  Sender: ROCHE
  Company Number: JP-ROCHE-10000366929

PATIENT

DRUGS (14)
  1. MABTHERA [Suspect]
     Active Substance: RITUXIMAB
     Indication: Systemic scleroderma
     Route: 065
  2. CELLCEPT [Suspect]
     Active Substance: MYCOPHENOLATE MOFETIL
     Indication: Systemic scleroderma
     Route: 048
  3. AZATHIOPRINE [Suspect]
     Active Substance: AZATHIOPRINE
     Indication: Systemic scleroderma
     Route: 065
  4. AZATHIOPRINE [Suspect]
     Active Substance: AZATHIOPRINE
     Indication: Systemic scleroderma
  5. CYCLOPHOSPHAMIDE [Suspect]
     Active Substance: CYCLOPHOSPHAMIDE
     Indication: Systemic scleroderma
     Route: 065
  6. CYCLOPHOSPHAMIDE [Suspect]
     Active Substance: CYCLOPHOSPHAMIDE
     Indication: Systemic scleroderma
  7. CYCLOSPORINE [Suspect]
     Active Substance: CYCLOSPORINE
     Indication: Systemic scleroderma
     Route: 065
  8. TACROLIMUS [Suspect]
     Active Substance: TACROLIMUS
     Indication: Systemic scleroderma
     Route: 065
  9. METHOTREXATE [Suspect]
     Active Substance: METHOTREXATE
     Indication: Systemic scleroderma
     Route: 065
  10. METHOTREXATE [Suspect]
     Active Substance: METHOTREXATE
     Indication: Systemic scleroderma
  11. ABATACEPT [Suspect]
     Active Substance: ABATACEPT
     Indication: Systemic scleroderma
     Route: 065
  12. BARICITINIB [Suspect]
     Active Substance: BARICITINIB
     Indication: Systemic scleroderma
     Route: 065
  13. EPOPROSTENOL [Suspect]
     Active Substance: EPOPROSTENOL
     Indication: Systemic scleroderma
     Route: 065
  14. EPOPROSTENOL [Suspect]
     Active Substance: EPOPROSTENOL
     Indication: Systemic scleroderma

REACTIONS (11)
  - Tuberculosis [Fatal]
  - Lung neoplasm malignant [Fatal]
  - Pancreatic carcinoma [Fatal]
  - Bladder cancer [Fatal]
  - Gallbladder cancer [Fatal]
  - Leukaemia [Fatal]
  - Hepatic cancer [Fatal]
  - Ovarian cancer [Fatal]
  - Rectal cancer [Fatal]
  - Pneumonia [Fatal]
  - Cholangitis [Fatal]
